FAERS Safety Report 5010376-2 (Version None)
Quarter: 2006Q2

REPORT INFORMATION
  Report Type: 
  Country: None (occurrence: None)
  Receive Date: 20060523
  Receipt Date: 20060509
  Transmission Date: 20061013
  Serious: Yes (Hospitalization)
  Sender: FDA-Public Use
  Company Number: 223487

PATIENT
  Age: 75 Year
  Sex: Female
  Weight: 91.3 kg

DRUGS (14)
  1. AVASTIN [Suspect]
     Indication: COLORECTAL CANCER
     Dosage: 7.5 MG/KG, Q3W, INTRAVENOUS  : 290 MG
     Route: 030
     Dates: start: 20051129, end: 20060314
  2. AVASTIN [Suspect]
     Indication: COLORECTAL CANCER
     Dosage: 7.5 MG/KG, Q3W, INTRAVENOUS  : 290 MG
     Route: 030
     Dates: start: 20060414
  3. CAPECITABINE(CAPECITABINE) [Suspect]
     Indication: COLORECTAL CANCER
     Dosage: 2500 MG, Q3W, ORAL  : 2000 MG, QD
     Route: 048
     Dates: start: 20051129, end: 20060314
  4. CAPECITABINE(CAPECITABINE) [Suspect]
     Indication: COLORECTAL CANCER
     Dosage: 2500 MG, Q3W, ORAL  : 2000 MG, QD
     Route: 048
     Dates: start: 20060414
  5. OXALIPLATIN(OXALIPLATIN) [Suspect]
     Indication: COLORECTAL CANCER
     Dosage: 193 MG, Q3W, INTRAVENOUS : 166 MG
     Route: 042
     Dates: start: 20051129, end: 20060314
  6. OXALIPLATIN(OXALIPLATIN) [Suspect]
     Indication: COLORECTAL CANCER
     Dosage: 193 MG, Q3W, INTRAVENOUS : 166 MG
     Route: 042
     Dates: start: 20060414
  7. OMEPRAZOLE [Concomitant]
  8. FENTANYL (FENTANYL CITRATE) [Concomitant]
  9. WARFARIN SODIUM [Concomitant]
  10. FUROSEMIDE [Concomitant]
  11. DOCUSATE SODIUM [Concomitant]
  12. ATORVASTATIN (ATORVASTATIN CALCIUM) [Concomitant]
  13. ACETAMINOPHEN [Concomitant]
  14. ANTICOAGULANT THERAPY (ANTICOAGULANT NOS) [Concomitant]

REACTIONS (13)
  - ASTHENIA [None]
  - BLOOD POTASSIUM DECREASED [None]
  - BLOOD SODIUM DECREASED [None]
  - DEHYDRATION [None]
  - DIZZINESS [None]
  - INTERNATIONAL NORMALISED RATIO INCREASED [None]
  - NAUSEA [None]
  - ORAL INTAKE REDUCED [None]
  - PALLOR [None]
  - PROTHROMBIN TIME PROLONGED [None]
  - SMALL INTESTINAL OBSTRUCTION [None]
  - VOMITING [None]
  - WHITE BLOOD CELL COUNT DECREASED [None]
